FAERS Safety Report 23784963 (Version 1)
Quarter: 2024Q2

REPORT INFORMATION
  Report Type: Spontaneous
  Country: US (occurrence: US)
  Receive Date: 20240425
  Receipt Date: 20240425
  Transmission Date: 20240716
  Serious: No
  Sender: FDA-Public Use
  Company Number: US-DUCHESNAY-2023US000219

PATIENT

DRUGS (2)
  1. OSPHENA [Suspect]
     Active Substance: OSPEMIFENE
     Indication: Vulvovaginal dryness
     Dosage: 60 MILLIGRAM DAILY
     Route: 048
     Dates: start: 202305, end: 202305
  2. OSPHENA [Suspect]
     Active Substance: OSPEMIFENE
     Indication: Dyspareunia

REACTIONS (3)
  - Abdominal pain upper [Recovered/Resolved]
  - Sleep disorder [Unknown]
  - Wrong technique in product usage process [Recovered/Resolved]

NARRATIVE: CASE EVENT DATE: 20230501
